FAERS Safety Report 20385453 (Version 3)
Quarter: 2022Q1

REPORT INFORMATION
  Report Type: Report from Study
  Country: NL (occurrence: NL)
  Receive Date: 20220127
  Receipt Date: 20220307
  Transmission Date: 20220423
  Serious: Yes (Other)
  Sender: FDA-Public Use
  Company Number: NL-GILEAD-2021-0552555

PATIENT
  Age: 56 Year
  Sex: Male
  Weight: 80 kg

DRUGS (41)
  1. BREXUCABTAGENE AUTOLEUCEL [Suspect]
     Active Substance: BREXUCABTAGENE AUTOLEUCEL
     Indication: Mantle cell lymphoma
     Dosage: 1 DOSAGE FORM, ONCE; 68
     Route: 042
     Dates: start: 20211005, end: 20211005
  2. CYCLOPHOSPHAMIDE [Suspect]
     Active Substance: CYCLOPHOSPHAMIDE
     Indication: Bone marrow conditioning regimen
     Dosage: 1040
     Route: 042
     Dates: start: 20210930, end: 20211002
  3. FLUDARABINE [Suspect]
     Active Substance: FLUDARABINE PHOSPHATE
     Indication: Bone marrow conditioning regimen
     Dosage: 62.5
     Route: 042
     Dates: start: 20210930, end: 20211002
  4. MESNA [Suspect]
     Active Substance: MESNA
     Indication: Prophylaxis
     Dosage: 400
     Route: 065
     Dates: start: 20210930, end: 20211003
  5. HEPARIN [Concomitant]
     Active Substance: HEPARIN SODIUM
     Dosage: 3,ML,ONCE
     Route: 042
     Dates: start: 20210930, end: 20210930
  6. LIDOCAINE [Concomitant]
     Active Substance: LIDOCAINE
     Dosage: 200,MG,ONCE
     Route: 058
     Dates: start: 20210930, end: 20210930
  7. SODIUM BICARBONATE [Concomitant]
     Active Substance: SODIUM BICARBONATE
     Dosage: 1,OTHER,ONCE
     Route: 058
     Dates: start: 20210930, end: 20210930
  8. METOCLOPRAMIDE [Concomitant]
     Active Substance: METOCLOPRAMIDE
     Dosage: 10,MG,OTHER
     Route: 048
     Dates: start: 20210930, end: 20211018
  9. ACYCLOVIR [Concomitant]
     Active Substance: ACYCLOVIR
     Dosage: 770,MG,THREE TIMES DAILY
     Route: 042
     Dates: start: 20211013, end: 20211015
  10. DEXAMETHASONE [Concomitant]
     Active Substance: DEXAMETHASONE
     Dosage: UNK
     Dates: start: 20211010, end: 20211010
  11. SODIUM CHLORIDE [Concomitant]
     Active Substance: SODIUM CHLORIDE
  12. CLEMASTINE [Concomitant]
     Active Substance: CLEMASTINE
     Dosage: 2,MG,ONCE
     Route: 042
     Dates: start: 20211005, end: 20211005
  13. RASBURICASE [Concomitant]
     Active Substance: RASBURICASE
     Dosage: 3,MG,ONCE
     Route: 042
     Dates: start: 20210930, end: 20210930
  14. RASBURICASE [Concomitant]
     Active Substance: RASBURICASE
     Dosage: 3,MG,ONCE
     Route: 042
     Dates: start: 20211005, end: 20211005
  15. LEVETIRACETAM [Concomitant]
     Active Substance: LEVETIRACETAM
     Dosage: 750,MG,TWICE DAILY
     Route: 048
     Dates: start: 20211013
  16. LEVETIRACETAM [Concomitant]
     Active Substance: LEVETIRACETAM
     Dosage: 500,MG,TWICE DAILY
     Route: 048
     Dates: start: 20211013, end: 20211013
  17. AMOXICILLIN [Concomitant]
     Active Substance: AMOXICILLIN
     Dosage: 2000,MG,OTHER
     Route: 042
     Dates: start: 20211013, end: 20211015
  18. ELECTROLYTES NOS [Concomitant]
     Active Substance: ELECTROLYTES NOS
     Dosage: 500,ML,FOUR TIMES DAILY
     Route: 042
     Dates: start: 20211011, end: 20211012
  19. VALACYCLOVIR HYDROCHLORIDE [Concomitant]
     Active Substance: VALACYCLOVIR HYDROCHLORIDE
     Dosage: 500,MG,TWICE DAILY
     Route: 048
     Dates: start: 20211005
  20. PROPOFOL [Concomitant]
     Active Substance: PROPOFOL
     Dosage: 1.818,OTHER,CONTINUOUS
     Route: 042
     Dates: start: 20211013, end: 20211013
  21. METHYLPREDNISOLONE [Concomitant]
     Active Substance: METHYLPREDNISOLONE
     Dosage: 1000,MG,DAILY
     Route: 042
     Dates: start: 20211013, end: 20211013
  22. METHYLPREDNISOLONE [Concomitant]
     Active Substance: METHYLPREDNISOLONE
     Dosage: 1000,MG,TWICE DAILY
     Route: 042
     Dates: start: 20211013, end: 20211015
  23. METHYLPREDNISOLONE [Concomitant]
     Active Substance: METHYLPREDNISOLONE
     Dosage: 1000,MG,DAILY
     Route: 042
     Dates: start: 20211016, end: 20211016
  24. METHYLPREDNISOLONE [Concomitant]
     Active Substance: METHYLPREDNISOLONE
     Dosage: 500,MG,DAILY
     Route: 042
     Dates: start: 20211017, end: 20211018
  25. METHYLPREDNISOLONE [Concomitant]
     Active Substance: METHYLPREDNISOLONE
     Dosage: 250,MG,DAILY
     Route: 042
     Dates: start: 20211019, end: 20211019
  26. ONDANSETRON [Concomitant]
     Active Substance: ONDANSETRON
     Dosage: UNK
     Dates: start: 20210930, end: 20211011
  27. SULFAMETHOXAZOLE\TRIMETHOPRIM [Concomitant]
     Active Substance: SULFAMETHOXAZOLE\TRIMETHOPRIM
     Dosage: 480,MG,DAILY
     Route: 048
     Dates: start: 20211005
  28. ACETAMINOPHEN [Concomitant]
     Active Substance: ACETAMINOPHEN
     Dosage: 1000,MG,ONCE
     Route: 048
     Dates: start: 20211005, end: 20211005
  29. ACETAMINOPHEN [Concomitant]
     Active Substance: ACETAMINOPHEN
     Dosage: 1000,MG,FOUR TIMES DAILY
     Route: 048
     Dates: start: 20211008, end: 20211009
  30. ACETAMINOPHEN [Concomitant]
     Active Substance: ACETAMINOPHEN
     Dosage: 500,MG,OTHER
     Route: 048
     Dates: start: 20211009, end: 20211011
  31. ACETAMINOPHEN [Concomitant]
     Active Substance: ACETAMINOPHEN
     Dosage: 500,MG,OTHER
     Route: 048
     Dates: start: 20211012, end: 20211013
  32. ACETAMINOPHEN [Concomitant]
     Active Substance: ACETAMINOPHEN
     Dosage: 1000,MG,THREE TIMES DAILY
     Route: 048
     Dates: start: 20211013, end: 20211014
  33. ACETAMINOPHEN [Concomitant]
     Active Substance: ACETAMINOPHEN
     Dosage: 1000,MG,THREE TIMES DAILY
     Route: 050
     Dates: start: 20211013, end: 20211015
  34. NADROPARIN [Concomitant]
     Active Substance: NADROPARIN
     Dosage: 2.850,IU,DAILY
     Route: 058
     Dates: start: 20211011, end: 20211014
  35. GENTAMICIN [Concomitant]
     Active Substance: GENTAMICIN
     Dosage: UNK
     Dates: start: 20211010, end: 20211010
  36. ESOMEPRAZOLE [Concomitant]
     Active Substance: ESOMEPRAZOLE
     Dosage: 40,MG,DAILY
     Route: 048
     Dates: start: 20211014, end: 20211029
  37. FILGRASTIM [Concomitant]
     Active Substance: FILGRASTIM
     Dosage: 0.5,ML,DAILY
     Route: 058
     Dates: start: 20211103
  38. FILGRASTIM [Concomitant]
     Active Substance: FILGRASTIM
     Dosage: 0.5,ML,DAILY
     Route: 058
     Dates: start: 20211103, end: 20220203
  39. SODIUM CHLORIDE [Concomitant]
     Active Substance: SODIUM CHLORIDE
     Dosage: UNK
     Dates: start: 20210930, end: 20211003
  40. CEFTRIAXONE [Concomitant]
     Active Substance: CEFTRIAXONE
  41. TOCILIZUMAB [Concomitant]
     Active Substance: TOCILIZUMAB
     Dosage: UNK
     Dates: start: 20211010, end: 20211012

REACTIONS (5)
  - Cytokine release syndrome [Recovered/Resolved]
  - Influenza like illness [Recovered/Resolved]
  - Pyrexia [Recovered/Resolved]
  - Hypotension [Recovered/Resolved]
  - Hypoxia [Recovered/Resolved]

NARRATIVE: CASE EVENT DATE: 20211011
